FAERS Safety Report 12461562 (Version 1)
Quarter: 2016Q2

REPORT INFORMATION
  Report Type: Report from Study
  Country: GB (occurrence: GB)
  Receive Date: 20160613
  Receipt Date: 20160613
  Transmission Date: 20160815
  Serious: Yes (Death, Hospitalization, Other)
  Sender: FDA-Public Use
  Company Number: PHHY2013GB174933

PATIENT
  Age: 77 Year
  Sex: Male
  Weight: 62 kg

DRUGS (2)
  1. VOTRIENT [Suspect]
     Active Substance: PAZOPANIB HYDROCHLORIDE
     Indication: METASTATIC RENAL CELL CARCINOMA
     Dosage: 600 MG, QD
     Route: 048
     Dates: start: 20131204, end: 20131219
  2. ORABASE [Concomitant]
     Active Substance: CARBOXYMETHYLCELLULOSE SODIUM\GELATIN\PECTIN
     Indication: ORAL PAIN
     Dosage: 1 DF (1 APPLICATION)
     Route: 061
     Dates: start: 20140101

REACTIONS (10)
  - Diarrhoea [Fatal]
  - Dyspnoea [Unknown]
  - Oesophageal candidiasis [Unknown]
  - Oesophagitis [Fatal]
  - Mucosal inflammation [Unknown]
  - Hiatus hernia [Fatal]
  - Asthenia [Fatal]
  - Oral candidiasis [Unknown]
  - Feeding disorder [Unknown]
  - Weight decreased [Unknown]

NARRATIVE: CASE EVENT DATE: 20131221
